FAERS Safety Report 23855919 (Version 1)
Quarter: 2024Q2

REPORT INFORMATION
  Report Type: Spontaneous
  Country: SE (occurrence: SE)
  Receive Date: 20240515
  Receipt Date: 20240515
  Transmission Date: 20240716
  Serious: Yes (Hospitalization)
  Sender: FDA-Public Use
  Company Number: None

PATIENT
  Age: 33 Year
  Sex: Female
  Weight: 133 kg

DRUGS (5)
  1. CEPHALORIDINE [Concomitant]
     Active Substance: CEPHALORIDINE
     Dosage: 75 ?G, QD
     Route: 048
  2. METFORMIN HYDROCHLORIDE [Concomitant]
     Active Substance: METFORMIN HYDROCHLORIDE
     Dosage: 500 MG, QD
     Route: 048
  3. TOUJEO [Concomitant]
     Active Substance: INSULIN GLARGINE
     Dosage: 54 IU, QD
     Route: 058
  4. RYBELSUS [Suspect]
     Active Substance: SEMAGLUTIDE
     Indication: Type 2 diabetes mellitus
     Dosage: 1 TABLETT 1 G?NG DAGLIGEN
     Route: 048
     Dates: start: 20240123, end: 20240427
  5. RYBELSUS [Suspect]
     Active Substance: SEMAGLUTIDE
     Indication: Obesity

REACTIONS (5)
  - Hypophagia [Not Recovered/Not Resolved]
  - Liver disorder [Not Recovered/Not Resolved]
  - Vomiting [Not Recovered/Not Resolved]
  - Abdominal pain [Not Recovered/Not Resolved]
  - Nausea [Not Recovered/Not Resolved]

NARRATIVE: CASE EVENT DATE: 20240427
